FAERS Safety Report 9631675 (Version 1)
Quarter: 2013Q4

REPORT INFORMATION
  Report Type: Spontaneous
  Country: US (occurrence: None)
  Receive Date: 20131017
  Receipt Date: 20131017
  Transmission Date: 20140711
  Serious: Yes (Other)
  Sender: FDA-Public Use
  Company Number: None

PATIENT
  Sex: Female

DRUGS (1)
  1. SILDENAFIL CITRATE [Suspect]
     Indication: RAYNAUD^S PHENOMENON
     Route: 048
     Dates: start: 20120314

REACTIONS (1)
  - Gastrointestinal haemorrhage [None]
